FAERS Safety Report 12109811 (Version 2)
Quarter: 2016Q1

REPORT INFORMATION
  Report Type: Report from Study
  Country: US (occurrence: US)
  Receive Date: 20160224
  Receipt Date: 20160301
  Transmission Date: 20160526
  Serious: Yes (Hospitalization)
  Sender: FDA-Public Use
  Company Number: US-ASTRAZENECA-2016SE05470

PATIENT
  Age: 17160 Day
  Sex: Male
  Weight: 79.4 kg

DRUGS (3)
  1. SEROQUEL XR [Suspect]
     Active Substance: QUETIAPINE FUMARATE
     Indication: BIPOLAR DISORDER
     Route: 048
     Dates: start: 2006
  2. NEURONTIN [Concomitant]
     Active Substance: GABAPENTIN
     Indication: AFFECTIVE DISORDER
     Route: 048
     Dates: start: 2014
  3. SEROQUEL XR [Suspect]
     Active Substance: QUETIAPINE FUMARATE
     Indication: BIPOLAR DISORDER
     Route: 048
     Dates: start: 20160112

REACTIONS (4)
  - Adverse event [Unknown]
  - Intentional product misuse [Unknown]
  - Hallucination, auditory [Unknown]
  - Confusional state [Unknown]

NARRATIVE: CASE EVENT DATE: 20160112
